FAERS Safety Report 7872699-9 (Version None)
Quarter: 2011Q4

REPORT INFORMATION
  Report Type: 
  Country: None (occurrence: None)
  Receive Date: 20111030
  Receipt Date: 20110420
  Transmission Date: 20120403
  Serious: No
  Sender: FDA-Public Use
  Company Number: US-AMGEN-USASP2011013332

PATIENT
  Age: 50 Year
  Sex: Female

DRUGS (3)
  1. ENBREL [Suspect]
     Indication: RHEUMATOID ARTHRITIS
     Dosage: 50 MG, QWK
     Dates: start: 20110126
  2. METHOTREXATE [Concomitant]
     Dates: start: 20100101
  3. PLAQUENIL [Concomitant]
     Dates: start: 20100101

REACTIONS (9)
  - HOT FLUSH [None]
  - INJECTION SITE ERYTHEMA [None]
  - BURNING SENSATION [None]
  - RASH PRURITIC [None]
  - PARAESTHESIA [None]
  - INJECTION SITE REACTION [None]
  - RASH PAPULAR [None]
  - INJECTION SITE PRURITUS [None]
  - INJECTION SITE PAIN [None]
